FAERS Safety Report 8668322 (Version 2)
Quarter: 2012Q4

REPORT INFORMATION
  Report Type: 
  Country: US (occurrence: US)
  Receive Date: 20120717
  Receipt Date: 20120905
  Transmission Date: 20130627
  Serious: No
  Sender: FDA-Public Use
  Company Number: US-009507513-1207USA002737

PATIENT

DRUGS (3)
  1. VICTRELIS [Suspect]
     Indication: HEPATITIS C
     Dosage: 800 mg, tid
     Route: 048
     Dates: start: 20120524
  2. PEGASYS [Suspect]
  3. RIBAPAK [Suspect]

REACTIONS (2)
  - White blood cell count decreased [Unknown]
  - Fatigue [Unknown]
